FAERS Safety Report 5951948-8 (Version None)
Quarter: 2008Q4

REPORT INFORMATION
  Report Type: 
  Country: None (occurrence: None)
  Receive Date: 20081113
  Receipt Date: 20070926
  Transmission Date: 20090506
  Serious: Yes (Hospitalization)
  Sender: FDA-Public Use
  Company Number: A0684345A

PATIENT
  Age: 72 Year
  Sex: Male

DRUGS (8)
  1. COREG [Suspect]
     Indication: HYPERTENSION
     Dosage: 3.125MG TWICE PER DAY
     Route: 048
     Dates: start: 20070727
  2. COREG CR [Suspect]
     Indication: HYPERTENSION
     Dosage: 10MG PER DAY
     Route: 048
     Dates: start: 20070626, end: 20070726
  3. DIOVAN [Concomitant]
  4. PLAVIX [Concomitant]
  5. VYTORIN [Concomitant]
  6. FOSAMAX [Concomitant]
  7. LUMIGAN [Concomitant]
  8. TIMOLOL [Concomitant]

REACTIONS (2)
  - HEART RATE DECREASED [None]
  - POLLAKIURIA [None]
